FAERS Safety Report 7205506-8 (Version None)
Quarter: 2010Q4

REPORT INFORMATION
  Report Type: 
  Country: None (occurrence: None)
  Receive Date: 20101231
  Receipt Date: 20101222
  Transmission Date: 20110411
  Serious: Yes (Hospitalization)
  Sender: FDA-Public Use
  Company Number: PHHO2010AU19331

PATIENT
  Sex: Male
  Weight: 97.55 kg

DRUGS (5)
  1. ZOLEDRONATE [Suspect]
     Indication: PROSTATE CANCER
     Dosage: 4MG
     Route: 042
     Dates: start: 20100909, end: 20101215
  2. AFINITOR [Suspect]
     Indication: PROSTATE CANCER
     Dosage: UNK
     Route: 048
  3. LESCOL [Suspect]
     Indication: PROSTATE CANCER
     Dosage: 120 MG
     Route: 048
  4. FRUSEMIDE [Concomitant]
  5. RAMIPRIL [Concomitant]

REACTIONS (8)
  - ABDOMINAL PAIN [None]
  - DEHYDRATION [None]
  - DIARRHOEA [None]
  - FEBRILE NEUTROPENIA [None]
  - NAUSEA [None]
  - PYREXIA [None]
  - RENAL IMPAIRMENT [None]
  - VOMITING [None]
